FAERS Safety Report 5746337-5 (Version None)
Quarter: 2008Q2

REPORT INFORMATION
  Report Type: 
  Country: None (occurrence: None)
  Receive Date: 20080522
  Receipt Date: 20080514
  Transmission Date: 20081010
  Serious: Yes (Other)
  Sender: FDA-Public Use
  Company Number: PHHY2008BR08154

PATIENT

DRUGS (1)
  1. RITALIN [Suspect]
     Indication: ATTENTION DEFICIT/HYPERACTIVITY DISORDER
     Dosage: 1 AND HALF TAB MORNING,HALF TAB AFTERNOON
     Route: 048

REACTIONS (4)
  - ANXIETY [None]
  - HYPERTHYROIDISM [None]
  - INSOMNIA [None]
  - WEIGHT DECREASED [None]
